FAERS Safety Report 5934785-X (Version None)
Quarter: 2008Q4

REPORT INFORMATION
  Report Type: 
  Country: None (occurrence: None)
  Receive Date: 20081029
  Receipt Date: 20081021
  Transmission Date: 20090506
  Serious: Yes (Death)
  Sender: FDA-Public Use
  Company Number: US-GENENTECH-270189

PATIENT
  Age: 71 Year
  Sex: Female
  Weight: 70 kg

DRUGS (9)
  1. BEVACIZUMAB [Suspect]
     Indication: GLIOBLASTOMA MULTIFORME
     Dosage: 700 MG, Q2W
     Route: 042
     Dates: start: 20080307
  2. BEVACIZUMAB [Suspect]
     Dosage: 700 MG, Q2W
     Route: 042
     Dates: start: 20080321
  3. TEMOZOLOMIDE [Suspect]
     Indication: GLIOBLASTOMA MULTIFORME
     Dosage: 360 MG, UNK
     Route: 048
     Dates: start: 20080307, end: 20080311
  4. SYNTHROID [Concomitant]
     Indication: DRUG USE FOR UNKNOWN INDICATION
  5. METOPROLOL TARTRATE [Concomitant]
     Indication: DRUG USE FOR UNKNOWN INDICATION
  6. CORTEF [Concomitant]
     Indication: DRUG USE FOR UNKNOWN INDICATION
  7. VITAMIN E [Concomitant]
     Indication: DRUG USE FOR UNKNOWN INDICATION
  8. DECADRON [Concomitant]
     Indication: DRUG USE FOR UNKNOWN INDICATION
  9. LOTREL [Concomitant]
     Indication: DRUG USE FOR UNKNOWN INDICATION

REACTIONS (1)
  - DEATH [None]
